FAERS Safety Report 5909904-1 (Version None)
Quarter: 2008Q4

REPORT INFORMATION
  Report Type: 
  Country: None (occurrence: None)
  Receive Date: 20081007
  Receipt Date: 20080929
  Transmission Date: 20090506
  Serious: Yes (Hospitalization, Other)
  Sender: FDA-Public Use
  Company Number: PHHY2008DE22846

PATIENT
  Sex: Male
  Weight: 75 kg

DRUGS (4)
  1. ZOMETA [Suspect]
     Indication: BONE DISORDER
     Dosage: 4 MG EVERY 4 WEEKS
     Route: 042
     Dates: start: 20060509, end: 20080408
  2. VINBLASTINE SULFATE [Concomitant]
     Dosage: UNK
     Dates: start: 20060701, end: 20060901
  3. ROFERON-A [Concomitant]
     Dosage: UNK
     Dates: start: 20060701, end: 20060901
  4. SUTENT [Concomitant]
     Dosage: 50 MG/DAY
     Dates: start: 20061001

REACTIONS (4)
  - MALIGNANT NEOPLASM PROGRESSION [None]
  - METASTASES TO LUNG [None]
  - ORAL SURGERY [None]
  - OSTEONECROSIS [None]
